FAERS Safety Report 9636634 (Version 6)
Quarter: 2014Q3

REPORT INFORMATION
  Report Type: Spontaneous
  Country: US (occurrence: US)
  Receive Date: 20131021
  Receipt Date: 20140701
  Transmission Date: 20150326
  Serious: Yes (Hospitalization, Disabling, Other)
  Sender: FDA-Public Use
  Company Number: US-009507513-1310USA006767

PATIENT
  Sex: Female
  Weight: 68.93 kg

DRUGS (5)
  1. FOSAMAX PLUS D [Suspect]
     Active Substance: ALENDRONATE SODIUM\CHOLECALCIFEROL
     Indication: OSTEOPOROSIS
     Dosage: 70 MG/2800 IU, QW
     Route: 048
  2. FOSAMAX PLUS D [Suspect]
     Active Substance: ALENDRONATE SODIUM\CHOLECALCIFEROL
     Dosage: 2800 DF, UNK
     Route: 048
     Dates: start: 20061205, end: 20070327
  3. FOSAMAX [Suspect]
     Active Substance: ALENDRONATE SODIUM
     Indication: OSTEOPOROSIS
     Dosage: 10 MG, QD
     Route: 048
     Dates: start: 20000321, end: 200104
  4. FOSAMAX [Suspect]
     Active Substance: ALENDRONATE SODIUM
     Dosage: 70 MG, QW
     Route: 048
     Dates: start: 200104, end: 200805
  5. ALENDRONATE SODIUM. [Suspect]
     Active Substance: ALENDRONATE SODIUM
     Indication: OSTEOPOROSIS
     Dosage: 70 MG, QW
     Route: 048
     Dates: start: 200805, end: 20120507

REACTIONS (75)
  - Renal failure [Unknown]
  - Mitral valve prolapse [Unknown]
  - Cerumen impaction [Unknown]
  - Telangiectasia [Unknown]
  - Jaw disorder [Unknown]
  - Mitral valve incompetence [Unknown]
  - Left ventricular hypertrophy [Unknown]
  - Cataract operation [Unknown]
  - Appendicectomy [Unknown]
  - Rib fracture [Unknown]
  - Vitamin D deficiency [Unknown]
  - Arthropod bite [Unknown]
  - Joint stiffness [Unknown]
  - Nocturia [Unknown]
  - Low turnover osteopathy [Not Recovered/Not Resolved]
  - Osteoporosis [Not Recovered/Not Resolved]
  - Nasal congestion [Unknown]
  - Nasopharyngitis [Unknown]
  - Breast mass [Unknown]
  - Kyphosis [Unknown]
  - Diverticulum [Unknown]
  - Meniere^s disease [Unknown]
  - Sleep apnoea syndrome [Unknown]
  - Deafness neurosensory [Unknown]
  - Knee arthroplasty [Unknown]
  - Femur fracture [Recovered/Resolved]
  - Osteoarthritis [Unknown]
  - Pulmonary fibrosis [Unknown]
  - Left atrial dilatation [Unknown]
  - Dysplastic naevus [Unknown]
  - Spinal osteoarthritis [Unknown]
  - Adverse event [Unknown]
  - Movement disorder [Recovering/Resolving]
  - Onychogryphosis [Unknown]
  - Intramedullary rod insertion [Unknown]
  - Femur fracture [Unknown]
  - Foot fracture [Unknown]
  - Hypokalaemia [Recovering/Resolving]
  - Mitral valve calcification [Unknown]
  - Aortic dilatation [Unknown]
  - Rectal haemorrhage [Unknown]
  - Varicose vein [Unknown]
  - Pulmonary hypertension [Unknown]
  - Vaginal stricture [Unknown]
  - Insomnia [Unknown]
  - Foot fracture [Unknown]
  - Hypothyroidism [Unknown]
  - Onychomycosis [Unknown]
  - Neoplasm skin [Unknown]
  - Fibula fracture [Recovered/Resolved]
  - Spinal compression fracture [Unknown]
  - Spondylitis [Unknown]
  - Aortic calcification [Unknown]
  - Peripheral venous disease [Unknown]
  - Intraocular lens implant [Unknown]
  - Choroid neoplasm [Unknown]
  - Dislocation of vertebra [Unknown]
  - Traumatic haematoma [Unknown]
  - Pain in extremity [Unknown]
  - Diarrhoea [Recovered/Resolved]
  - Haemorrhagic anaemia [Recovering/Resolving]
  - Fibrocystic breast disease [Unknown]
  - Phlebolith [Unknown]
  - Tendonitis [Unknown]
  - Large intestine polyp [Unknown]
  - Arthralgia [Unknown]
  - Hip fracture [Not Recovered/Not Resolved]
  - Mitral valve repair [Unknown]
  - Osteopenia [Unknown]
  - Dermatitis [Unknown]
  - Breast calcifications [Unknown]
  - Osteoarthritis [Unknown]
  - Cervical rib [Unknown]
  - Vertigo positional [Unknown]
  - Herpes zoster [Unknown]

NARRATIVE: CASE EVENT DATE: 20000403
